FAERS Safety Report 4602936-5 (Version None)
Quarter: 2005Q1

REPORT INFORMATION
  Report Type: 
  Country: None (occurrence: None)
  Receive Date: 20050307
  Receipt Date: 20050222
  Transmission Date: 20050727
  Serious: Yes (Hospitalization)
  Sender: FDA-Public Use
  Company Number: 2005035266

PATIENT
  Age: 63 Year
  Sex: Female

DRUGS (8)
  1. LITHIUM CARBONATE [Suspect]
     Indication: ILL-DEFINED DISORDER
     Dosage: 675 MG
     Dates: end: 20040107
  2. LORAZEPAM [Suspect]
     Indication: ILL-DEFINED DISORDER
     Dosage: 6 MG, ORAL
     Route: 048
     Dates: end: 20050122
  3. TRAZODONE HCL [Suspect]
     Indication: ILL-DEFINED DISORDER
     Dosage: 400 MG
     Dates: start: 20040106, end: 20040122
  4. ZIPRASIDONE (CAPS) (ZIPRASIDONE) [Suspect]
     Indication: ILL-DEFINED DISORDER
     Dosage: 80 MG
     Dates: start: 20040119, end: 20040122
  5. HALOPERIDOL [Suspect]
     Indication: ILL-DEFINED DISORDER
     Dosage: 6 MG
     Dates: start: 20040118, end: 20040121
  6. DONEPEZIL HCL [Suspect]
     Indication: ILL-DEFINED DISORDER
     Dosage: 10 MG (1 IN 1 D)
     Dates: end: 20050122
  7. QUETIAPINE FUMARATE (QUETIAPINE FUMARATE) [Suspect]
     Indication: ILL-DEFINED DISORDER
     Dosage: 400 MG
     Dates: end: 20040116
  8. OLANZAPINE [Suspect]
     Indication: ILL-DEFINED DISORDER
     Dosage: 20 MG
     Dates: start: 20040116, end: 20040119

REACTIONS (6)
  - ANURIA [None]
  - DRUG INTERACTION [None]
  - HAEMODIALYSIS [None]
  - NEUROLEPTIC MALIGNANT SYNDROME [None]
  - RENAL FAILURE ACUTE [None]
  - RHABDOMYOLYSIS [None]
